FAERS Safety Report 8564958-1 (Version None)
Quarter: 2012Q3

REPORT INFORMATION
  Report Type: 
  Country: None (occurrence: None)
  Receive Date: 20120723
  Receipt Date: 20120706
  Transmission Date: 20120928
  Serious: Yes (Other)
  Sender: FDA-Public Use
  Company Number: GGEL20120700867

PATIENT
  Age: 20 Month
  Sex: Male

DRUGS (1)
  1. LAMOTRIGINE [Suspect]
     Indication: ACCIDENTAL OVERDOSE
     Dosage: 10 * 150MG TABLETS

REACTIONS (9)
  - CONVULSION [None]
  - MENTAL STATUS CHANGES [None]
  - ATAXIA [None]
  - ACCIDENTAL OVERDOSE [None]
  - ACCIDENTAL DRUG INTAKE BY CHILD [None]
  - TOXICITY TO VARIOUS AGENTS [None]
  - VOMITING [None]
  - CRYING [None]
  - TONIC CLONIC MOVEMENTS [None]
